FAERS Safety Report 18379371 (Version 2)
Quarter: 2020Q4

REPORT INFORMATION
  Report Type: Spontaneous
  Country: AU (occurrence: AU)
  Receive Date: 20201013
  Receipt Date: 20201103
  Transmission Date: 20210114
  Serious: Yes (Hospitalization)
  Sender: FDA-Public Use
  Company Number: AU-MYLANLABS-2020M1086758

PATIENT
  Sex: Male

DRUGS (3)
  1. CLOZARIL [Suspect]
     Active Substance: CLOZAPINE
     Dosage: 150 MILLIGRAM
     Dates: start: 20021014
  2. CLOZARIL [Suspect]
     Active Substance: CLOZAPINE
     Dosage: 12.5
     Route: 048
     Dates: start: 20201007
  3. CLOZARIL [Suspect]
     Active Substance: CLOZAPINE
     Indication: SCHIZOPHRENIA
     Dosage: 450 MILLIGRAM
     Route: 048
     Dates: start: 20021014, end: 20200929

REACTIONS (3)
  - Left ventricular dysfunction [Unknown]
  - Treatment noncompliance [Unknown]
  - Schizophrenia [Unknown]

NARRATIVE: CASE EVENT DATE: 2020
